FAERS Safety Report 4353926-1 (Version None)
Quarter: 2004Q2

REPORT INFORMATION
  Report Type: 
  Country: None (occurrence: None)
  Receive Date: 20040506
  Receipt Date: 20040114
  Transmission Date: 20050107
  Serious: No
  Sender: FDA-Public Use
  Company Number: US-GLAXOSMITHKLINE-A0493248A

PATIENT
  Age: 41 Year
  Sex: Male

DRUGS (4)
  1. AVANDAMET [Suspect]
     Indication: ILL-DEFINED DISORDER
     Route: 048
  2. AVAPRO [Concomitant]
  3. ASPIRIN [Concomitant]
  4. MULTI-VITAMIN [Concomitant]

REACTIONS (1)
  - SINUS CONGESTION [None]
